FAERS Safety Report 8874887 (Version 1)
Quarter: 2012Q4

REPORT INFORMATION
  Report Type: 
  Country: MX (occurrence: MX)
  Receive Date: 20121030
  Receipt Date: 20121030
  Transmission Date: 20130627
  Serious: Yes (Hospitalization)
  Sender: FDA-Public Use
  Company Number: MX-ABBOTT-12P-107-1001041-00

PATIENT
  Age: 36 Year
  Sex: Male

DRUGS (6)
  1. HUMIRA [Suspect]
     Indication: CROHN^S DISEASE
  2. HUMIRA [Suspect]
  3. HUMIRA [Suspect]
  4. AZATHIOPRINE [Suspect]
     Indication: CROHN^S DISEASE
  5. PREDNISONE [Suspect]
     Indication: CROHN^S DISEASE
  6. MESALAZINE [Concomitant]
     Indication: CROHN^S DISEASE

REACTIONS (2)
  - Neutropenia [Unknown]
  - Pneumocystis jiroveci pneumonia [Recovered/Resolved]
